FAERS Safety Report 5737120-5 (Version None)
Quarter: 2008Q2

REPORT INFORMATION
  Report Type: 
  Country: None (occurrence: None)
  Receive Date: 20080513
  Receipt Date: 20080513
  Transmission Date: 20081010
  Serious: Yes (Other)
  Sender: FDA-Public Use
  Company Number: None

PATIENT
  Age: 70 Year
  Sex: Female

DRUGS (1)
  1. DIGITEK 0.125MG AMIDE-BERTEK- [Suspect]
     Dosage: 0.125MG DAILY LAST FEW WEEKS

REACTIONS (2)
  - DIZZINESS [None]
  - PALPITATIONS [None]
